FAERS Safety Report 7403115-9 (Version None)
Quarter: 2011Q2

REPORT INFORMATION
  Report Type: 
  Country: None (occurrence: None)
  Receive Date: 20110408
  Receipt Date: 20110405
  Transmission Date: 20111010
  Serious: Yes (Other)
  Sender: FDA-Public Use
  Company Number: US-PFIZER INC-2011075362

PATIENT

DRUGS (1)
  1. GEODON [Suspect]
     Dosage: 40 MG, UNK

REACTIONS (4)
  - OEDEMA MOUTH [None]
  - PRURITUS GENERALISED [None]
  - HYPERSENSITIVITY [None]
  - SWELLING [None]
